FAERS Safety Report 24337938 (Version 1)
Quarter: 2024Q3

REPORT INFORMATION
  Report Type: Spontaneous
  Country: US (occurrence: US)
  Receive Date: 20240919
  Receipt Date: 20240919
  Transmission Date: 20241016
  Serious: Yes (Hospitalization, Disabling)
  Sender: SANDOZ
  Company Number: US-MLMSERVICE-20240906-PI186745-00232-1

PATIENT
  Age: 81 Year
  Sex: Female

DRUGS (1)
  1. MYCOPHENOLATE MOFETIL [Suspect]
     Active Substance: MYCOPHENOLATE MOFETIL
     Indication: Eosinophilic granulomatosis with polyangiitis
     Dosage: ONE-GRAM TWICE DAILY
     Route: 065

REACTIONS (2)
  - Epstein-Barr virus associated lymphoproliferative disorder [Recovering/Resolving]
  - Central nervous system lymphoma [Recovering/Resolving]
